FAERS Safety Report 11589074 (Version 3)
Quarter: 2016Q3

REPORT INFORMATION
  Report Type: Spontaneous
  Country: US (occurrence: US)
  Receive Date: 20151002
  Receipt Date: 20160808
  Transmission Date: 20161109
  Serious: No
  Sender: FDA-Public Use
  Company Number: US-PFIZER INC-2015325744

PATIENT
  Age: 29 Year
  Sex: Female
  Weight: 59 kg

DRUGS (7)
  1. ZOFRAN [Suspect]
     Active Substance: ONDANSETRON HYDROCHLORIDE
     Indication: VOMITING
  2. DUEXIS [Concomitant]
     Active Substance: FAMOTIDINE\IBUPROFEN
     Indication: INFLAMMATION
     Dosage: 800 MG, AS NEEDED (HAS BEEN TAKING FOR A COUPLE MONTHS BUT NOT EVERY DAY)
     Route: 048
  3. ZOFRAN [Suspect]
     Active Substance: ONDANSETRON HYDROCHLORIDE
     Indication: NAUSEA
     Dosage: UNK (AS PRESCRIBED)
     Route: 048
     Dates: start: 20150926
  4. DUEXIS [Concomitant]
     Active Substance: FAMOTIDINE\IBUPROFEN
     Indication: NECK PAIN
  5. DUEXIS [Concomitant]
     Active Substance: FAMOTIDINE\IBUPROFEN
     Indication: INTERVERTEBRAL DISC PROTRUSION
  6. CEFTRIAXONE SODIUM. [Suspect]
     Active Substance: CEFTRIAXONE SODIUM
     Indication: BACTERIAL INFECTION
     Dosage: 1 G, ONCE
     Route: 030
     Dates: start: 20150926, end: 20150926
  7. ZITHROMAX [Suspect]
     Active Substance: AZITHROMYCIN DIHYDRATE
     Indication: BACTERIAL INFECTION
     Dosage: UNK (TOOK THE DOUBLE DOSE ON SATURDAY BUT DID NOT TAKE AGAIN, AS DIRECTED)
     Route: 048
     Dates: start: 20150926, end: 20150926

REACTIONS (8)
  - Chills [Unknown]
  - Diarrhoea [Unknown]
  - Genitourinary symptom [Unknown]
  - Pyrexia [Unknown]
  - Myalgia [Recovering/Resolving]
  - Arthralgia [Not Recovered/Not Resolved]
  - Injection site pain [Unknown]
  - Arthralgia [Recovering/Resolving]

NARRATIVE: CASE EVENT DATE: 20150926
